FAERS Safety Report 10696315 (Version 1)
Quarter: 2015Q1

REPORT INFORMATION
  Report Type: Report from Study
  Country: AR (occurrence: AR)
  Receive Date: 20150107
  Receipt Date: 20150107
  Transmission Date: 20150721
  Serious: Yes (Other)
  Sender: FDA-Public Use
  Company Number: PHHY2015AR001087

PATIENT
  Sex: Female

DRUGS (1)
  1. EXFORGE [Suspect]
     Active Substance: AMLODIPINE BESYLATE\VALSARTAN
     Indication: HYPERTENSION
     Dosage: 1 DF (320/5), QD
     Route: 065
     Dates: start: 2010

REACTIONS (4)
  - Osteoporosis [Unknown]
  - Fall [Unknown]
  - Spinal compression fracture [Unknown]
  - Back pain [Unknown]
